FAERS Safety Report 8564243-8 (Version None)
Quarter: 2012Q3

REPORT INFORMATION
  Report Type: 
  Country: None (occurrence: None)
  Receive Date: 20120803
  Receipt Date: 20120724
  Transmission Date: 20120928
  Serious: Yes (Hospitalization)
  Sender: FDA-Public Use
  Company Number: FR-009507513-1207FRA010026

PATIENT

DRUGS (6)
  1. PROPRANOLOL [Concomitant]
     Indication: HYPERTENSION
     Dosage: 40 MG, BID
     Dates: start: 20060101
  2. COLCHIMAX (COLCHICINE (+) DICYCLOMINE HYDROCHLORIDE) [Concomitant]
     Indication: HYPERURICAEMIA
     Dosage: 1 DF, QD
     Dates: start: 20090101
  3. VICTRELIS [Suspect]
     Indication: HEPATITIS C
     Dosage: 800 MG, TID
     Dates: start: 20110421, end: 20110808
  4. REBETOL [Suspect]
     Indication: HEPATITIS C
     Dosage: 600 MG, BID
     Dates: start: 20110421, end: 20110808
  5. VIRAFERONPEG [Suspect]
     Indication: HEPATITIS C
     Dosage: 1.5 MICROGRAM PER KILOGRAM, QW
     Dates: start: 20110421, end: 20110808
  6. LEVOTHYROXINE SODIUM [Concomitant]
     Indication: HYPOTHYROIDISM
     Dosage: 75 MICROGRAM, QD
     Dates: start: 20030101

REACTIONS (1)
  - INFECTIOUS PLEURAL EFFUSION [None]
